FAERS Safety Report 16074794 (Version 1)
Quarter: 2019Q1

REPORT INFORMATION
  Report Type: Spontaneous
  Country: MX (occurrence: MX)
  Receive Date: 20190314
  Receipt Date: 20190314
  Transmission Date: 20190418
  Serious: Yes (Other)
  Sender: FDA-Public Use
  Company Number: PHHY2019MX057020

PATIENT
  Sex: Male
  Weight: 13 kg

DRUGS (2)
  1. CEFTRIAXONE. [Suspect]
     Active Substance: CEFTRIAXONE
     Indication: MENINGITIS
     Dosage: 200 MG/KG, QD
     Route: 048
  2. VANCOMYCIN [Suspect]
     Active Substance: VANCOMYCIN
     Indication: MENINGITIS
     Dosage: 60 MG/KG, QD
     Route: 048

REACTIONS (6)
  - Hydrocephalus [Recovered/Resolved with Sequelae]
  - Dyskinesia [Recovered/Resolved with Sequelae]
  - Vomiting [Recovered/Resolved with Sequelae]
  - Mycobacterial infection [Recovered/Resolved with Sequelae]
  - Gaze palsy [Recovered/Resolved with Sequelae]
  - Dilatation ventricular [Recovered/Resolved with Sequelae]
